FAERS Safety Report 7826775-7 (Version None)
Quarter: 2011Q4

REPORT INFORMATION
  Report Type: 
  Country: None (occurrence: None)
  Receive Date: 20111020
  Receipt Date: 20111007
  Transmission Date: 20120403
  Serious: Yes (Hospitalization)
  Sender: FDA-Public Use
  Company Number: JP-UCBSA-024665

PATIENT
  Age: 42 Year
  Sex: Female

DRUGS (25)
  1. CERTOLIZUMAB PEGOL [Suspect]
     Route: 058
     Dates: start: 20090924, end: 20110324
  2. FERROUS CITRATE [Concomitant]
     Dates: start: 20080415, end: 20110106
  3. NORETHISTERONE_ETHINYLESTRADIOL [Concomitant]
     Dosage: ONE TABLET DAILY
     Dates: start: 20100421, end: 20100511
  4. BROTIZOLAM [Concomitant]
     Dosage: DAILY DOSE: 0.25 MG
     Dates: start: 20110210
  5. PROCESSED ACONITE ROOT [Concomitant]
     Dosage: DAILY DOSE: 1.5 G
     Dates: start: 20100119, end: 20110201
  6. CEVIMELINE HYDROCHLORIDE HYDRATE [Concomitant]
     Dates: start: 20070718, end: 20110106
  7. LANSOPRAZOLE [Concomitant]
     Dosage: DAILY DOSE: 15 MG
     Dates: start: 20100506
  8. LOXOPROFEN SODIUM HYDRATE [Concomitant]
     Dosage: DAILY DOSE: 2 MG
     Dates: start: 20110224
  9. PREDNISOLONE [Concomitant]
     Dosage: 2MG
     Dates: start: 20110223
  10. BUCILLAMINE [Concomitant]
     Dates: start: 20071128
  11. OGI-KENTYU-TO [Concomitant]
     Dosage: DAILY DOSE: 9 G
     Dates: start: 20100413, end: 20100420
  12. NORETHISTERONE_ETHINYLESTRADIOL [Concomitant]
     Dosage: 1 TABLET DAILY
     Dates: start: 20110108
  13. CERTOLIZUMAB PEGOL [Suspect]
     Indication: RHEUMATOID ARTHRITIS
     Route: 058
     Dates: start: 20110407, end: 20110728
  14. LOXOPROFEN SODIUM [Concomitant]
     Dates: start: 20100726, end: 20101223
  15. KETOPROFEN [Concomitant]
     Dosage: ADEQUATE DOSE
     Dates: start: 20091105
  16. ISONIAZID [Concomitant]
     Dates: start: 20090509
  17. NITRAZEPAM [Concomitant]
     Dosage: DAILY DOSE: 5 MG
     Dates: start: 20101226
  18. CERTOLIZUMAB PEGOL [Suspect]
     Dosage: UNKNOWN
     Route: 058
     Dates: start: 20090604, end: 20090910
  19. PREDNISOLONE [Concomitant]
     Dates: start: 20090202, end: 20110223
  20. GOSHA-JINKI-GAN [Concomitant]
     Dosage: DAILY DOSE: 7.5 G
     Dates: start: 20100119, end: 20100201
  21. PREDNISOLONE [Concomitant]
     Dosage: 5MG
     Dates: start: 20110224
  22. TRANEXAMIC ACID [Concomitant]
     Dates: start: 20100119, end: 20100202
  23. LOXOPROFEN SODIUM [Concomitant]
     Dates: start: 20101224
  24. CARBAZOCHROME SODIUM SULFONATE [Concomitant]
     Dosage: DAILY DOSE: 90 MG
     Dates: start: 20100119, end: 20100202
  25. REBAMIPIDE [Concomitant]
     Dosage: DAILY DOSE: 200 MG
     Dates: start: 20110114

REACTIONS (3)
  - ENTERITIS INFECTIOUS [None]
  - MIGRAINE [None]
  - THORACIC OUTLET SYNDROME [None]
